FAERS Safety Report 6510588-2 (Version None)
Quarter: 2009Q4

REPORT INFORMATION
  Report Type: 
  Country: None (occurrence: None)
  Receive Date: 20091222
  Receipt Date: 20091102
  Transmission Date: 20100525
  Serious: No
  Sender: FDA-Public Use
  Company Number: US-ASTRAZENECA-2009SE24039

PATIENT
  Age: 60 Year
  Sex: Female
  Weight: 74.8 kg

DRUGS (5)
  1. CRESTOR [Suspect]
     Indication: BLOOD CHOLESTEROL
     Route: 048
     Dates: start: 20091001, end: 20091001
  2. TRIAMTERENE AND HYDROCHLOROTHIAZIDE [Concomitant]
  3. VALIUM [Concomitant]
  4. DARVOCET [Concomitant]
  5. ALIGN PROBIOTIC SUPPLEMENT [Concomitant]

REACTIONS (2)
  - FLUSHING [None]
  - PRURITUS [None]
